FAERS Safety Report 5708827-0 (Version None)
Quarter: 2008Q2

REPORT INFORMATION
  Report Type: 
  Country: None (occurrence: None)
  Receive Date: 20080416
  Receipt Date: 20080402
  Transmission Date: 20081010
  Serious: Yes (Other)
  Sender: FDA-Public Use
  Company Number: 025943

PATIENT
  Sex: Female

DRUGS (2)
  1. TRI-SPRINTEC(NORGESTIMATE, ETHYLESTRADIOL) TABLET [Suspect]
     Indication: HORMONE THERAPY
     Dosage: ORAL
     Route: 048
     Dates: start: 20080301
  2. TRI-SPRINTEC(NORGESTIMATE, ETHYLESTRADIOL) TABLET [Suspect]
     Indication: OFF LABEL USE
     Dosage: ORAL
     Route: 048
     Dates: start: 20080301

REACTIONS (5)
  - DYSPNOEA [None]
  - HYPERSENSITIVITY [None]
  - LYMPHADENOPATHY [None]
  - MENORRHAGIA [None]
  - PHARYNGEAL OEDEMA [None]
